FAERS Safety Report 17941111 (Version 1)
Quarter: 2020Q2

REPORT INFORMATION
  Report Type: Spontaneous
  Country: US (occurrence: US)
  Receive Date: 20200624
  Receipt Date: 20200624
  Transmission Date: 20200714
  Serious: Yes (Hospitalization, Other)
  Sender: FDA-Public Use
  Company Number: US-GILEAD-2020-0473733

PATIENT
  Age: 39 Year
  Sex: Male
  Weight: 75 kg

DRUGS (17)
  1. CHLORHEXIDINE [Concomitant]
     Active Substance: CHLORHEXIDINE
     Dosage: UNK
     Route: 048
     Dates: start: 20200613
  2. DEXAMETHASONE. [Concomitant]
     Active Substance: DEXAMETHASONE
     Dosage: 6 MG, QD
     Route: 042
  3. MVI [VITAMINS NOS] [Concomitant]
     Dosage: UNK
     Dates: start: 20200613
  4. REMDESIVIR. [Suspect]
     Active Substance: REMDESIVIR
     Indication: COVID-19
     Dosage: 100 MG, QD
     Route: 065
     Dates: start: 20200612, end: 20200616
  5. METOCLOPRAMIDE. [Concomitant]
     Active Substance: METOCLOPRAMIDE
     Dosage: 5 MG, Q8H
     Route: 042
  6. ARTIFICIAL TEARS [HYPROMELLOSE] [Concomitant]
     Dosage: UNK
     Dates: start: 20200613
  7. HEPARIN [Concomitant]
     Active Substance: HEPARIN SODIUM
     Route: 042
  8. FUROSEMIDE. [Concomitant]
     Active Substance: FUROSEMIDE
     Dosage: 20 MG, Q8H
     Route: 042
     Dates: start: 20200617
  9. SENNA-S [DOCUSATE SODIUM;SENNOSIDE A+B] [Concomitant]
     Dosage: UNK, BID
     Route: 048
     Dates: start: 20200616
  10. FAMOTIDINE. [Concomitant]
     Active Substance: FAMOTIDINE
     Dosage: 20 MG, BID
     Route: 048
     Dates: start: 20200613
  11. ASPIRIN [ACETYLSALICYLIC ACID] [Concomitant]
     Active Substance: ASPIRIN
     Dosage: 81 MG, QD
     Route: 048
     Dates: start: 20200613
  12. CEFTRIAXONE. [Concomitant]
     Active Substance: CEFTRIAXONE
     Dosage: 1 G, QD
     Route: 042
  13. VANCOMYCIN [Concomitant]
     Active Substance: VANCOMYCIN
     Dosage: UNK
     Route: 042
     Dates: start: 20200613, end: 20200617
  14. INSULIN [Concomitant]
     Active Substance: INSULIN NOS
     Route: 042
  15. MIDAZOLAM. [Concomitant]
     Active Substance: MIDAZOLAM
     Route: 042
  16. DEXMEDETOMIDINE. [Concomitant]
     Active Substance: DEXMEDETOMIDINE
     Route: 042
  17. FENTANYL. [Concomitant]
     Active Substance: FENTANYL
     Route: 042

REACTIONS (2)
  - Respiratory failure [Unknown]
  - Liver function test increased [Unknown]

NARRATIVE: CASE EVENT DATE: 202006
